FAERS Safety Report 9603158 (Version 1)
Quarter: 2013Q4

REPORT INFORMATION
  Report Type: Spontaneous
  Country: NO (occurrence: NO)
  Receive Date: 20131007
  Receipt Date: 20131007
  Transmission Date: 20140711
  Serious: Yes (Disabling, Congenital Anomaly)
  Sender: FDA-Public Use
  Company Number: NO-WATSON-2013-17674

PATIENT
  Sex: Female

DRUGS (2)
  1. LEVETIRACETAM (UNKNOWN) [Suspect]
     Indication: EPILEPSY
     Dosage: UNK
     Route: 064
  2. LEVETIRACETAM (UNKNOWN) [Suspect]
     Dosage: UNK, DAILY DOSE:1000 (1ST TRIMESTER)
     Route: 064

REACTIONS (2)
  - Deafness [Unknown]
  - Foetal exposure during pregnancy [Recovered/Resolved]
